FAERS Safety Report 24362438 (Version 1)
Quarter: 2024Q3

REPORT INFORMATION
  Report Type: Spontaneous
  Country: US (occurrence: US)
  Receive Date: 20240925
  Receipt Date: 20240925
  Transmission Date: 20241017
  Serious: Yes (Other)
  Sender: CHEPLAPHARM
  Company Number: US-CHEPLA-2024012103

PATIENT
  Age: 82 Year
  Sex: Male

DRUGS (2)
  1. HYDROXYUREA [Suspect]
     Active Substance: HYDROXYUREA
     Indication: Product used for unknown indication
     Dosage: BID?DAILY DOSE: 4 DOSAGE FORM
     Dates: end: 20240823
  2. JAKAFI [Suspect]
     Active Substance: RUXOLITINIB
     Indication: Myelofibrosis
     Dosage: BID?DAILY DOSE: 30 MILLIGRAM
     Route: 048
     Dates: start: 20240723

REACTIONS (4)
  - Haematological malignancy [Unknown]
  - Epistaxis [Recovered/Resolved]
  - White blood cell count decreased [Unknown]
  - Arthropathy [Unknown]

NARRATIVE: CASE EVENT DATE: 20240824
